FAERS Safety Report 18163419 (Version 1)
Quarter: 2020Q3

REPORT INFORMATION
  Report Type: Spontaneous
  Country: FR (occurrence: FR)
  Receive Date: 20200818
  Receipt Date: 20200818
  Transmission Date: 20201103
  Serious: Yes (Death)
  Sender: FDA-Public Use
  Company Number: FR-NOVA LABORATORIES LIMITED-2088735

PATIENT
  Age: 65 Year
  Sex: Male

DRUGS (3)
  1. ALL?TRANS RETINOIC ACID [Suspect]
     Active Substance: TRETINOIN
  2. PURIXAN [Suspect]
     Active Substance: MERCAPTOPURINE
     Indication: ACUTE MYELOID LEUKAEMIA
  3. METHOTREXATE. [Suspect]
     Active Substance: METHOTREXATE

REACTIONS (2)
  - Infection [Fatal]
  - Off label use [None]
